FAERS Safety Report 10013425 (Version 1)
Quarter: 2014Q1

REPORT INFORMATION
  Report Type: Report from Study
  Country: US (occurrence: US)
  Receive Date: 20140314
  Receipt Date: 20140314
  Transmission Date: 20141002
  Serious: Yes (Hospitalization, Other)
  Sender: FDA-Public Use
  Company Number: US-ABBVIE-14P-163-1211075-00

PATIENT
  Age: 23 Year
  Sex: Female

DRUGS (8)
  1. RITONAVIR [Suspect]
     Indication: ANTIRETROVIRAL THERAPY
     Route: 048
     Dates: start: 20130627, end: 20130901
  2. RITONAVIR [Suspect]
     Route: 048
     Dates: start: 20130901
  3. TRUVADA [Suspect]
     Indication: ANTIRETROVIRAL THERAPY
     Route: 048
     Dates: start: 20130613
  4. ISENTRESS [Suspect]
     Indication: ANTIRETROVIRAL THERAPY
     Route: 048
     Dates: start: 20130613
  5. PREZISTA [Suspect]
     Indication: ANTIRETROVIRAL THERAPY
     Route: 048
     Dates: start: 20130627, end: 20130901
  6. PREZISTA [Suspect]
     Route: 048
     Dates: start: 20130901
  7. RETROVIR [Suspect]
     Indication: ANTIRETROVIRAL THERAPY
     Route: 042
     Dates: start: 20131129, end: 20131129
  8. RETROVIR [Suspect]
     Route: 042
     Dates: start: 20131129

REACTIONS (3)
  - Sepsis [Unknown]
  - Cardiac tamponade [Unknown]
  - Infarction [Unknown]
